FAERS Safety Report 4463668-X (Version None)
Quarter: 2004Q4

REPORT INFORMATION
  Report Type: 
  Country: None (occurrence: None)
  Receive Date: 20041001
  Receipt Date: 20040921
  Transmission Date: 20050328
  Serious: Yes (Death, Hospitalization)
  Sender: FDA-Public Use
  Company Number: ES-JNJFOC-20040907416

PATIENT
  Age: 35 Year
  Sex: Male

DRUGS (6)
  1. REMICADE [Suspect]
     Dosage: 3RD INFUSION
     Route: 042
  2. REMICADE [Suspect]
     Dosage: 2ND INFUSION
     Route: 042
  3. REMICADE [Suspect]
     Indication: CROHN'S DISEASE
     Dosage: 1ST INFUSION
     Route: 042
  4. PREDNISONE [Concomitant]
     Route: 065
  5. IMUREL [Concomitant]
     Route: 065
  6. METRONIDAZOLE [Concomitant]
     Route: 065

REACTIONS (9)
  - CONDITION AGGRAVATED [None]
  - CROHN'S DISEASE [None]
  - IMMOBILE [None]
  - MYALGIA [None]
  - MYOSITIS [None]
  - PULMONARY EMBOLISM [None]
  - PYREXIA [None]
  - RESPIRATORY DISTRESS [None]
  - THERAPY NON-RESPONDER [None]
